FAERS Safety Report 17706008 (Version 1)
Quarter: 2020Q2

REPORT INFORMATION
  Report Type: Spontaneous
  Country: US (occurrence: US)
  Receive Date: 20200424
  Receipt Date: 20200424
  Transmission Date: 20200714
  Serious: Yes (Life-Threatening, Hospitalization)
  Sender: FDA-Public Use
  Company Number: US-MYLANLABS-2020M1040812

PATIENT
  Age: 37 Year
  Sex: Female

DRUGS (10)
  1. ADENOSINE. [Suspect]
     Active Substance: ADENOSINE
     Indication: SUPRAVENTRICULAR TACHYCARDIA
     Dosage: 6 MILLIGRAM
     Route: 065
  2. VASOPRESSIN. [Suspect]
     Active Substance: VASOPRESSIN
     Indication: HYPOTENSION
     Dosage: DRIPS
     Route: 065
  3. PROPRANOLOL [Suspect]
     Active Substance: PROPRANOLOL HYDROCHLORIDE
     Indication: THYROTOXIC CRISIS
  4. NOREPINEPHRINE. [Suspect]
     Active Substance: NOREPINEPHRINE
     Indication: HYPOTENSION
     Dosage: DRIPS.
     Route: 041
  5. ADENOSINE. [Suspect]
     Active Substance: ADENOSINE
     Dosage: 12 MILLIGRAM
     Route: 065
  6. PROPRANOLOL [Suspect]
     Active Substance: PROPRANOLOL HYDROCHLORIDE
     Indication: SUPRAVENTRICULAR TACHYCARDIA
     Dosage: THREE TIMES DAILY
     Route: 065
  7. PHENYLEPHRINE [Suspect]
     Active Substance: PHENYLEPHRINE HYDROCHLORIDE
     Indication: HYPOTENSION
     Dosage: DRIPS
     Route: 065
  8. EPINEPHRINE. [Suspect]
     Active Substance: EPINEPHRINE
     Indication: HYPOTENSION
     Dosage: DRIPS
     Route: 041
  9. DILTIAZEM. [Suspect]
     Active Substance: DILTIAZEM
     Indication: SUPRAVENTRICULAR TACHYCARDIA
     Dosage: DRIP
     Route: 040
  10. DOBUTAMINE [Suspect]
     Active Substance: DOBUTAMINE HYDROCHLORIDE
     Indication: HYPOTENSION
     Dosage: DRIPS
     Route: 065

REACTIONS (2)
  - Drug ineffective [Unknown]
  - Cardiogenic shock [Recovered/Resolved]
